FAERS Safety Report 8925749 (Version 1)
Quarter: 2012Q4

REPORT INFORMATION
  Report Type: 
  Country: ZA (occurrence: ZA)
  Receive Date: 20121126
  Receipt Date: 20121126
  Transmission Date: 20130627
  Serious: Yes (Hospitalization)
  Sender: FDA-Public Use
  Company Number: ZA-ASTRAZENECA-2012SE87056

PATIENT
  Age: 15705 Day
  Sex: Male

DRUGS (5)
  1. SEROQUEL [Suspect]
     Indication: BIPOLAR II DISORDER
     Route: 048
  2. SEROQUEL [Suspect]
     Indication: BIPOLAR II DISORDER
     Route: 048
  3. SEROQUEL [Suspect]
     Indication: BIPOLAR II DISORDER
     Route: 048
  4. SEROQUEL [Suspect]
     Indication: BIPOLAR II DISORDER
     Route: 048
  5. REMERON [Concomitant]
     Indication: DEPRESSION
     Route: 048

REACTIONS (3)
  - Activities of daily living impaired [Unknown]
  - Feeling abnormal [Unknown]
  - Somnolence [Not Recovered/Not Resolved]
